FAERS Safety Report 5528318-X (Version None)
Quarter: 2007Q4

REPORT INFORMATION
  Report Type: 
  Country: None (occurrence: None)
  Receive Date: 20071128
  Receipt Date: 20071119
  Transmission Date: 20080405
  Serious: Yes (Disabling)
  Sender: FDA-Public Use
  Company Number: JP-ABBOTT-07P-087-0359099-00

PATIENT
  Sex: Male
  Weight: 51 kg

DRUGS (11)
  1. KALETRA [Suspect]
     Indication: HIV INFECTION
     Route: 048
     Dates: start: 20050523, end: 20050725
  2. KALETRA [Suspect]
     Route: 048
     Dates: start: 20060523
  3. TENOFOVIR DISOPROXIL FUMARATE [Suspect]
     Indication: HIV INFECTION
     Route: 048
     Dates: start: 20050523, end: 20050725
  4. LAMIVUDINE [Suspect]
     Indication: HIV INFECTION
     Route: 048
     Dates: start: 20050523, end: 20050725
  5. LAMIVUDINE [Suspect]
     Route: 048
     Dates: start: 20051129
  6. RITONAVIR [Concomitant]
     Indication: HIV INFECTION
     Route: 048
     Dates: start: 20051129, end: 20060522
  7. ABACAVIR [Concomitant]
     Indication: HIV INFECTION
     Route: 048
     Dates: start: 20051129
  8. ATAZANAVIR SULFATE [Concomitant]
     Indication: HIV INFECTION
     Route: 048
     Dates: start: 20051129, end: 20060522
  9. MECOBALAMIN [Concomitant]
     Indication: HYPOAESTHESIA
     Route: 048
     Dates: start: 20050523
  10. BACTRIM [Concomitant]
     Indication: ANTIFUNGAL PROPHYLAXIS
     Route: 048
     Dates: start: 20050523, end: 20060411
  11. ATORVASTATIN CALCIUM [Concomitant]
     Indication: HYPERLIPIDAEMIA
     Route: 048
     Dates: start: 20070123

REACTIONS (1)
  - RENAL IMPAIRMENT [None]
